FAERS Safety Report 8516700-8 (Version None)
Quarter: 2012Q2

REPORT INFORMATION
  Report Type: 
  Country: None (occurrence: None)
  Receive Date: 20120406
  Receipt Date: 20101230
  Transmission Date: 20120825
  Serious: Yes (Other)
  Sender: FDA-Public Use
  Company Number: PHHY2010US83505

PATIENT
  Age: 60 Year
  Sex: Male

DRUGS (4)
  1. VITAMIN B12 [Concomitant]
  2. FOLIC ACID [Concomitant]
  3. TASIGNA [Suspect]
     Indication: CHRONIC MYELOID LEUKAEMIA
     Dosage: 400 MG, BID, ORAL ; 200 MG BID
     Route: 048
     Dates: start: 20100824
  4. TASIGNA [Suspect]
     Indication: CHRONIC MYELOID LEUKAEMIA
     Dosage: 400 MG, BID, ORAL ; 200 MG BID
     Route: 048
     Dates: start: 20100903, end: 20101021

REACTIONS (2)
  - DRUG INEFFECTIVE [None]
  - PANCYTOPENIA [None]
